FAERS Safety Report 4745860-X (Version None)
Quarter: 2005Q3

REPORT INFORMATION
  Report Type: 
  Country: None (occurrence: None)
  Receive Date: 20050816
  Receipt Date: 20050803
  Transmission Date: 20060218
  Serious: Yes (Other)
  Sender: FDA-Public Use
  Company Number: GB-NOVOPROD-245988

PATIENT
  Age: 63 Year
  Sex: Male
  Weight: 120 kg

DRUGS (9)
  1. NOVOMIX 30 [Suspect]
     Indication: DIABETES MELLITUS
     Dosage: 82 IU, QD
     Route: 058
     Dates: start: 20041109, end: 20050509
  2. ALBUTEROL SULFATE HFA [Concomitant]
  3. OMEPRAZOLE [Concomitant]
  4. SERETIDE ^ALLEN + HANBURYS LTD^ [Concomitant]
  5. CORACTEN [Concomitant]
  6. TAMSULOSIN [Concomitant]
  7. RAMIPRIL [Concomitant]
     Dosage: 5 MG, QD
  8. ASPIRIN [Concomitant]
  9. PARACETAMOL [Concomitant]

REACTIONS (3)
  - ARTHRALGIA [None]
  - JOINT SWELLING [None]
  - WEIGHT INCREASED [None]
